FAERS Safety Report 6395411-1 (Version None)
Quarter: 2009Q4

REPORT INFORMATION
  Report Type: 
  Country: None (occurrence: None)
  Receive Date: 20091006
  Receipt Date: 20090921
  Transmission Date: 20100525
  Serious: Yes (Other)
  Sender: FDA-Public Use
  Company Number: DSU-2009-02030

PATIENT
  Sex: Female

DRUGS (3)
  1. BENICAR [Suspect]
     Indication: PAIN
     Dosage: PER ORAL
     Route: 048
     Dates: end: 20090601
  2. DAYPRO [Suspect]
     Indication: ARTHRALGIA
     Dosage: PER ORAL
     Route: 048
     Dates: start: 20090101
  3. CELEBREX [Concomitant]

REACTIONS (3)
  - HAEMORRHAGE [None]
  - NAUSEA [None]
  - RECTAL HAEMORRHAGE [None]
